FAERS Safety Report 13406636 (Version 1)
Quarter: 2017Q2

REPORT INFORMATION
  Report Type: Spontaneous
  Country: US (occurrence: US)
  Receive Date: 20170405
  Receipt Date: 20170405
  Transmission Date: 20170830
  Serious: No
  Sender: FDA-Public Use
  Company Number: US-SA-2017SA026438

PATIENT
  Age: 42 Year
  Sex: Female

DRUGS (1)
  1. ALLEGRA [Suspect]
     Active Substance: FEXOFENADINE HYDROCHLORIDE
     Indication: UPPER-AIRWAY COUGH SYNDROME
     Dosage: FORM - SUSPENSION
     Route: 065

REACTIONS (2)
  - Therapeutic response decreased [Unknown]
  - Drug administered to patient of inappropriate age [Unknown]
